FAERS Safety Report 6585626-1 (Version None)
Quarter: 2010Q1

REPORT INFORMATION
  Report Type: 
  Country: None (occurrence: None)
  Receive Date: 20100217
  Receipt Date: 20100205
  Transmission Date: 20100710
  Serious: Yes (Hospitalization)
  Sender: FDA-Public Use
  Company Number: FR-BAYER-201014823GPV

PATIENT
  Age: 78 Year
  Sex: Male

DRUGS (6)
  1. GLUCOR [Suspect]
     Indication: TYPE 2 DIABETES MELLITUS
     Dosage: UNIT DOSE: 100 MG
     Route: 048
  2. METFORMIN HCL [Suspect]
     Indication: TYPE 2 DIABETES MELLITUS
     Dosage: UNIT DOSE: 1 G
     Route: 048
  3. PLAVIX [Suspect]
     Indication: TRANSIENT ISCHAEMIC ATTACK
     Dosage: TOTAL DAILY DOSE: 75 MG  UNIT DOSE: 75 MG
     Route: 048
     Dates: end: 20100114
  4. CO-RENITEC [Suspect]
     Indication: HYPERTENSION
     Route: 048
     Dates: end: 20100110
  5. OMEXEL [Suspect]
     Indication: BLADDER CANCER
     Dosage: TOTAL DAILY DOSE: 0.4 MG  UNIT DOSE: 0.4 MG
     Route: 048
     Dates: end: 20100114
  6. VITAMIN B-12 [Concomitant]

REACTIONS (5)
  - DECREASED APPETITE [None]
  - DERMATITIS EXFOLIATIVE [None]
  - INSOMNIA [None]
  - LICHENOID KERATOSIS [None]
  - PRURITUS [None]
